FAERS Safety Report 13867074 (Version 1)
Quarter: 2017Q3

REPORT INFORMATION
  Report Type: Spontaneous
  Country: US (occurrence: None)
  Receive Date: 20170814
  Receipt Date: 20170814
  Transmission Date: 20171127
  Serious: Yes (Hospitalization)
  Sender: FDA-Public Use
  Company Number: None

PATIENT
  Age: 6 Year
  Sex: Male

DRUGS (12)
  1. GLEOSTINE [Suspect]
     Active Substance: LOMUSTINE
     Indication: MALIGNANT NEOPLASM OF SPINAL CORD
     Route: 048
     Dates: start: 20170209
  2. MULTI-VITAMIN [Concomitant]
     Active Substance: .ALPHA.-TOCOPHEROL ACETATE, DL-\ASCORBIC ACID\CYANOCOBALAMIN\FLUORIDE ION\FOLIC ACID\NIACIN\PYRIDOXINE\RIBOFLAVIN\THIAMINE\VITAMIN A\VITAMIN D
  3. BACTRIM [Concomitant]
     Active Substance: SULFAMETHOXAZOLE\TRIMETHOPRIM
  4. MIRALAX [Concomitant]
     Active Substance: POLYETHYLENE GLYCOL 3350
  5. ZOFRAN [Concomitant]
     Active Substance: ONDANSETRON HYDROCHLORIDE
  6. TABLOID [Suspect]
     Active Substance: THIOGUANINE
     Indication: MALIGNANT NEOPLASM OF SPINAL CORD
     Dosage: 1/2 TABLET Q 6 HOURS ORAL
     Route: 048
     Dates: start: 20170209
  7. THIIGUANNINE [Concomitant]
  8. SENNA SMOOTH [Concomitant]
  9. ATIVAN [Concomitant]
     Active Substance: LORAZEPAM
  10. COLACE [Concomitant]
     Active Substance: DOCUSATE SODIUM
  11. DUOCAL [Concomitant]
  12. LEXAPRO [Concomitant]
     Active Substance: ESCITALOPRAM OXALATE

REACTIONS (4)
  - Red blood cell count decreased [None]
  - Haemoglobin decreased [None]
  - White blood cell count decreased [None]
  - Platelet count decreased [None]

NARRATIVE: CASE EVENT DATE: 201708
